FAERS Safety Report 21678452 (Version 2)
Quarter: 2022Q4

REPORT INFORMATION
  Report Type: Spontaneous
  Country: CN (occurrence: CN)
  Receive Date: 20221203
  Receipt Date: 20221210
  Transmission Date: 20230113
  Serious: Yes (Other)
  Sender: FDA-Public Use
  Company Number: CN-002147023-NVSC2022CN278167

PATIENT
  Age: 85 Year
  Sex: Male

DRUGS (4)
  1. ENTRESTO [Suspect]
     Active Substance: SACUBITRIL\VALSARTAN
     Indication: Hypertension
     Dosage: 1 DOSAGE FORM, QD, IN THE MORNING
     Route: 048
  2. ENTRESTO [Suspect]
     Active Substance: SACUBITRIL\VALSARTAN
     Dosage: 200 MG, IN THE MORNING
     Route: 048
  3. ENTRESTO [Suspect]
     Active Substance: SACUBITRIL\VALSARTAN
     Dosage: 200 MG, BID, IN THE MORNING AND ONE TABLET AT NIGHT
     Route: 048
  4. ENTRESTO [Suspect]
     Active Substance: SACUBITRIL\VALSARTAN
     Dosage: 1 DOSAGE FORM, TID, 1 TABLET AT 7:30 AM/1 TABLET AT ABOUT 23:00 PM/1 TABLET AT 3-4:00 AM
     Route: 048

REACTIONS (4)
  - Blood pressure systolic increased [Unknown]
  - Swelling of eyelid [Unknown]
  - Peripheral swelling [Unknown]
  - Off label use [Unknown]
